FAERS Safety Report 24445516 (Version 1)
Quarter: 2024Q4

REPORT INFORMATION
  Report Type: Spontaneous
  Country: US (occurrence: US)
  Receive Date: 20241016
  Receipt Date: 20241016
  Transmission Date: 20250114
  Serious: Yes (Hospitalization, Other)
  Sender: BAYER HEALTHCARE PHARMACEUTICALS INC.
  Company Number: US-BAYER-2024A144445

PATIENT
  Age: 71 Year
  Sex: Male

DRUGS (1)
  1. ADEMPAS [Suspect]
     Active Substance: RIOCIGUAT
     Indication: Pulmonary hypertension
     Dosage: 2 MG, TID
     Route: 048
     Dates: start: 20240705

REACTIONS (2)
  - Acute respiratory failure [None]
  - Pulmonary hypertension [None]

NARRATIVE: CASE EVENT DATE: 20241005
